FAERS Safety Report 4944080-3 (Version None)
Quarter: 2006Q1

REPORT INFORMATION
  Report Type: 
  Country: None (occurrence: None)
  Receive Date: 20060315
  Receipt Date: 20060126
  Transmission Date: 20060701
  Serious: Yes (Hospitalization)
  Sender: FDA-Public Use
  Company Number: US-BOEHRINGER INGELHEIM PHARMACEUTICALS, INC.-2006-BP-01188BP

PATIENT
  Age: 46 Year
  Sex: Male
  Weight: 99.79 kg

DRUGS (6)
  1. MIRAPEX [Suspect]
     Indication: PARKINSON'S DISEASE
     Route: 048
     Dates: start: 19960101, end: 20001017
  2. PAXIL [Suspect]
     Indication: DEPRESSION
     Dates: start: 19990101, end: 20001017
  3. SINEMET [Concomitant]
     Indication: PARKINSON'S DISEASE
     Dates: start: 19980101
  4. AMANTIDINE [Concomitant]
     Dates: start: 19960101
  5. SINEMET CR [Concomitant]
     Dates: start: 19990101
  6. COMTAN [Concomitant]
     Dates: start: 19990101

REACTIONS (5)
  - COMPULSIONS [None]
  - DEPENDENCE [None]
  - HALLUCINATION [None]
  - INSOMNIA [None]
  - MANIA [None]
